FAERS Safety Report 24562422 (Version 5)
Quarter: 2025Q3

REPORT INFORMATION
  Report Type: Report from Study
  Country: US (occurrence: US)
  Receive Date: 20241029
  Receipt Date: 20250819
  Transmission Date: 20251020
  Serious: No
  Sender: SUNOVION
  Company Number: US-SUMITOMO PHARMA SWITZERLAND GMBH-2024SPA004512

PATIENT
  Age: 85 Year
  Sex: Male

DRUGS (3)
  1. ORGOVYX [Suspect]
     Active Substance: RELUGOLIX
     Indication: Prostate cancer
     Route: 048
  2. ORGOVYX [Suspect]
     Active Substance: RELUGOLIX
     Dosage: 120 MG, QD
     Route: 048
     Dates: start: 20240525
  3. XTANDI [Suspect]
     Active Substance: ENZALUTAMIDE
     Indication: Product used for unknown indication

REACTIONS (8)
  - Eye injury [Recovering/Resolving]
  - Eye swelling [Recovering/Resolving]
  - Eye haemorrhage [Recovering/Resolving]
  - Fall [Unknown]
  - Nasopharyngitis [Unknown]
  - Ear disorder [Unknown]
  - Cystitis [Unknown]
  - Dizziness [Unknown]
